FAERS Safety Report 13988413 (Version 1)
Quarter: 2017Q3

REPORT INFORMATION
  Report Type: Spontaneous
  Country: NZ (occurrence: NZ)
  Receive Date: 20170919
  Receipt Date: 20170919
  Transmission Date: 20171128
  Serious: Yes (Other)
  Sender: FDA-Public Use
  Company Number: NZ-PFIZER INC-2017397266

PATIENT
  Age: 62 Year
  Sex: Male

DRUGS (2)
  1. IBUPROFEN. [Suspect]
     Active Substance: IBUPROFEN
     Dosage: UNK
  2. ASPIRIN (E.C.) [Interacting]
     Active Substance: ASPIRIN
     Dosage: UNK

REACTIONS (2)
  - Drug interaction [Unknown]
  - Thrombosis [Unknown]
